FAERS Safety Report 6647192-1 (Version None)
Quarter: 2010Q1

REPORT INFORMATION
  Report Type: 
  Country: None (occurrence: None)
  Receive Date: 20100323
  Receipt Date: 20100315
  Transmission Date: 20100710
  Serious: Yes (Hospitalization)
  Sender: FDA-Public Use
  Company Number: A0753999A

PATIENT
  Age: 29 Year
  Sex: Female

DRUGS (14)
  1. COMBIVIR [Suspect]
     Indication: HIV INFECTION
     Route: 048
     Dates: start: 20080225
  2. ZIDOVUDINE [Suspect]
     Indication: HIV INFECTION
     Route: 048
     Dates: start: 20080805, end: 20080805
  3. RITONAVIR [Suspect]
     Indication: HIV INFECTION
     Dosage: 100MG PER DAY
     Route: 048
     Dates: start: 20080225
  4. REYATAZ [Suspect]
     Indication: HIV INFECTION
     Dosage: 300MG PER DAY
     Route: 048
     Dates: start: 20080225
  5. OXYTOCIN [Concomitant]
     Dates: start: 20080825
  6. DEMEROL [Concomitant]
     Dates: start: 20080825, end: 20080825
  7. DIFLUCAN [Concomitant]
  8. FERROUS SULFATE TAB [Concomitant]
  9. KEFLEX [Concomitant]
  10. PHENERGAN HCL [Concomitant]
  11. VITAMIN TAB [Concomitant]
  12. PEPCID [Concomitant]
  13. MACRODANTIN [Concomitant]
  14. LACTATED RINGER'S [Concomitant]

REACTIONS (10)
  - ANAEMIA OF PREGNANCY [None]
  - BETA HAEMOLYTIC STREPTOCOCCAL INFECTION [None]
  - CHOLELITHIASIS [None]
  - DRUG EXPOSURE DURING PREGNANCY [None]
  - FUNGAL INFECTION [None]
  - LIVE BIRTH [None]
  - MECONIUM STAIN [None]
  - PLACENTAL DISORDER [None]
  - PREGNANCY INDUCED HYPERTENSION [None]
  - STAPHYLOCOCCAL INFECTION [None]
